FAERS Safety Report 5014525-1 (Version None)
Quarter: 2006Q2

REPORT INFORMATION
  Report Type: 
  Country: None (occurrence: None)
  Receive Date: 20060531
  Receipt Date: 20060511
  Transmission Date: 20061013
  Serious: Yes (Hospitalization)
  Sender: FDA-Public Use
  Company Number: JP-AVENTIS-200611473JP

PATIENT
  Age: 64 Year
  Sex: Male
  Weight: 65 kg

DRUGS (4)
  1. TAXOTERE [Suspect]
     Indication: OESOPHAGEAL SQUAMOUS CELL CARCINOMA STAGE III
     Route: 041
     Dates: start: 20060501, end: 20060501
  2. DECADRON SRC [Concomitant]
     Indication: PREMEDICATION
     Route: 041
     Dates: start: 20060501, end: 20060501
  3. NASEA [Concomitant]
     Indication: PREMEDICATION
     Dosage: DOSE: 1 AMPULE
     Route: 041
     Dates: start: 20060501, end: 20060501
  4. ALTAT [Concomitant]
     Indication: PREMEDICATION
     Dosage: DOSE: 1 AMPULE
     Route: 041
     Dates: start: 20060501, end: 20060501

REACTIONS (3)
  - BRADYCARDIA [None]
  - PERICARDIAL EFFUSION [None]
  - PERICARDITIS [None]
